FAERS Safety Report 6818620-3 (Version None)
Quarter: 2010Q3

REPORT INFORMATION
  Report Type: 
  Country: None (occurrence: None)
  Receive Date: 20100706
  Receipt Date: 20081208
  Transmission Date: 20110219
  Serious: Yes (Other)
  Sender: FDA-Public Use
  Company Number: US-PFIZER INC-2008091252

PATIENT
  Sex: Female
  Weight: 61.2 kg

DRUGS (13)
  1. ZITHROMAX [Suspect]
     Indication: SINUSITIS
     Dates: start: 20080523
  2. ZOCOR [Concomitant]
  3. LISINOPRIL [Concomitant]
  4. ASPIRINE [Concomitant]
  5. COREG [Concomitant]
  6. COUMADIN [Concomitant]
  7. LASIX [Concomitant]
  8. IRON [Concomitant]
  9. ACTONEL [Concomitant]
  10. LYRICA [Concomitant]
  11. ALL OTHER THERAPEUTIC PRODUCTS [Concomitant]
  12. AMBIEN [Concomitant]
  13. LANTUS [Concomitant]

REACTIONS (4)
  - BALANCE DISORDER [None]
  - DEAFNESS [None]
  - HYPOACUSIS [None]
  - TINNITUS [None]
